FAERS Safety Report 25841301 (Version 1)
Quarter: 2025Q3

REPORT INFORMATION
  Report Type: Spontaneous
  Country: GB (occurrence: GB)
  Receive Date: 20250924
  Receipt Date: 20250924
  Transmission Date: 20251021
  Serious: Yes (Hospitalization, Other)
  Sender: PFIZER
  Company Number: GB-ROCHE-1132196

PATIENT
  Age: 56 Year
  Sex: Female
  Weight: 101.4 kg

DRUGS (7)
  1. DOCETAXEL [Suspect]
     Active Substance: DOCETAXEL
     Indication: Breast cancer female
     Route: 042
     Dates: start: 20120816
  2. DOCETAXEL [Suspect]
     Active Substance: DOCETAXEL
     Indication: HER2 positive breast cancer
     Route: 042
     Dates: start: 20120917
  3. HERCEPTIN [Suspect]
     Active Substance: TRASTUZUMAB
     Indication: Breast cancer female
     Route: 042
     Dates: start: 20120816
  4. HERCEPTIN [Suspect]
     Active Substance: TRASTUZUMAB
     Indication: HER2 positive breast cancer
  5. FILGRASTIM [Suspect]
     Active Substance: FILGRASTIM
     Dates: start: 20120907, end: 20120913
  6. PLACEBO [Suspect]
     Active Substance: PLACEBO
     Indication: Breast cancer female
     Route: 042
     Dates: start: 20120816
  7. PLACEBO [Suspect]
     Active Substance: PLACEBO
     Indication: HER2 positive breast cancer

REACTIONS (8)
  - Pyrexia [Recovered/Resolved]
  - Neutropenic sepsis [Unknown]
  - Chills [Unknown]
  - Feeling cold [Unknown]
  - Nausea [Unknown]
  - Productive cough [Unknown]
  - Chromaturia [Unknown]
  - Cold sweat [Unknown]

NARRATIVE: CASE EVENT DATE: 20120916
